FAERS Safety Report 4286797-2 (Version None)
Quarter: 2004Q1

REPORT INFORMATION
  Report Type: 
  Country: None (occurrence: None)
  Receive Date: 20040206
  Receipt Date: 20010309
  Transmission Date: 20041129
  Serious: Yes (Hospitalization)
  Sender: FDA-Public Use
  Company Number: US-ROCHE-256397

PATIENT
  Sex: Male

DRUGS (1)
  1. POSICOR [Suspect]
     Indication: DRUG USE FOR UNKNOWN INDICATION
     Route: 065
     Dates: start: 19970315, end: 19980415

REACTIONS (7)
  - ARRHYTHMIA [None]
  - CHEST PAIN [None]
  - HEADACHE [None]
  - HEART RATE IRREGULAR [None]
  - HEPATOCELLULAR DAMAGE [None]
  - PANCREATIC DISORDER [None]
  - PROSTATE INFECTION [None]
